FAERS Safety Report 5363669-3 (Version None)
Quarter: 2007Q2

REPORT INFORMATION
  Report Type: 
  Country: None (occurrence: None)
  Receive Date: 20070618
  Receipt Date: 20070618
  Transmission Date: 20071010
  Serious: Yes (Life-Threatening, Hospitalization)
  Sender: FDA-Public Use
  Company Number: None

PATIENT
  Age: 79 Year
  Sex: Female

DRUGS (8)
  1. WARFARIN SODIUM [Suspect]
     Indication: ATRIAL FIBRILLATION
     Dosage: PO
     Route: 048
  2. FUROSEMIDE [Concomitant]
  3. COZAAR [Concomitant]
  4. PROTONIX [Concomitant]
  5. FOLATE [Concomitant]
  6. DETROL [Concomitant]
  7. METOPROLOL SUCCINATE [Concomitant]
  8. OSCAL-D [Concomitant]

REACTIONS (3)
  - ABNORMAL BEHAVIOUR [None]
  - FALL [None]
  - HAEMORRHAGE INTRACRANIAL [None]
